FAERS Safety Report 8280776-6 (Version None)
Quarter: 2012Q2

REPORT INFORMATION
  Report Type: 
  Country: None (occurrence: None)
  Receive Date: 20120412
  Receipt Date: 20120403
  Transmission Date: 20120825
  Serious: Yes (Other)
  Sender: FDA-Public Use
  Company Number: US-ABBOTT-12P-163-0921661-00

PATIENT
  Sex: Female
  Weight: 89.892 kg

DRUGS (16)
  1. PERCOCET [Suspect]
     Indication: PAIN
     Dosage: 10/325MG, UP TO 8 TABLETS A DAY, PRN
     Route: 048
  2. NEURONTIN [Suspect]
  3. TRAMADOL HCL [Suspect]
     Indication: PAIN
  4. SYNTHROID [Suspect]
     Indication: THYROID DISORDER
  5. PRISTIQ [Suspect]
     Dates: start: 20120101
  6. BACLOFEN [Suspect]
     Indication: MUSCLE SPASMS
  7. NEURONTIN [Suspect]
     Indication: MUSCLE SPASTICITY
  8. PRISTIQ [Suspect]
     Dates: end: 20120101
  9. XANAX [Suspect]
     Indication: ANXIETY
     Route: 048
  10. PRISTIQ [Suspect]
     Indication: DEPRESSION
     Route: 048
  11. ADDERALL 5 [Suspect]
     Indication: ANXIETY
  12. PRISTIQ [Suspect]
  13. XANAX [Suspect]
     Indication: HEADACHE
  14. ADDERALL 5 [Suspect]
     Indication: MULTIPLE SCLEROSIS
  15. ADDERALL 5 [Suspect]
     Indication: NERVOUS SYSTEM DISORDER
  16. BETASERON [Suspect]
     Indication: MULTIPLE SCLEROSIS
     Dosage: 0.25MG/1ML EOD
     Route: 050

REACTIONS (7)
  - CATATONIA [None]
  - DYSPEPSIA [None]
  - UNEVALUABLE EVENT [None]
  - ANXIETY [None]
  - WITHDRAWAL SYNDROME [None]
  - DRUG DETOXIFICATION [None]
  - HEADACHE [None]
